FAERS Safety Report 9438787 (Version 1)
Quarter: 2013Q3

REPORT INFORMATION
  Report Type: Spontaneous
  Country: US (occurrence: US)
  Receive Date: 20130802
  Receipt Date: 20130802
  Transmission Date: 20140515
  Serious: No
  Sender: FDA-Public Use
  Company Number: US-B.I. PHARMACEUTICALS,INC./RIDGEFIELD-2013-BI-22498BP

PATIENT
  Age: 86 Year
  Sex: Female
  Weight: 52 kg

DRUGS (4)
  1. TRADJENTA [Suspect]
     Indication: DIABETES MELLITUS INADEQUATE CONTROL
     Dosage: 5 MG
     Route: 048
     Dates: start: 20130705, end: 20130718
  2. ASPIRIN [Concomitant]
     Indication: HEART RATE INCREASED
     Dosage: 81 MG
     Route: 048
     Dates: start: 2003
  3. VERAPAMIL [Concomitant]
     Indication: HEART RATE INCREASED
     Route: 048
     Dates: start: 2003
  4. ATORVASTATIN [Concomitant]
     Indication: BLOOD CHOLESTEROL INCREASED
     Route: 048
     Dates: start: 1993

REACTIONS (1)
  - Faeces discoloured [Recovered/Resolved]
